FAERS Safety Report 15293491 (Version 3)
Quarter: 2018Q3

REPORT INFORMATION
  Report Type: Spontaneous
  Country: US (occurrence: US)
  Receive Date: 20180820
  Receipt Date: 20180823
  Transmission Date: 20181010
  Serious: No
  Sender: FDA-Public Use
  Company Number: US-TEVA-2018-US-944244

PATIENT
  Sex: Male

DRUGS (2)
  1. DESMOPRESSIN [Suspect]
     Active Substance: DESMOPRESSIN
     Indication: ENURESIS
     Route: 065
  2. DESMOPRESSIN [Suspect]
     Active Substance: DESMOPRESSIN
     Route: 065

REACTIONS (3)
  - Pollakiuria [Unknown]
  - Intentional product use issue [Unknown]
  - Drug ineffective [Unknown]
